FAERS Safety Report 13761537 (Version 1)
Quarter: 2017Q3

REPORT INFORMATION
  Report Type: Spontaneous
  Country: JP (occurrence: JP)
  Receive Date: 20170717
  Receipt Date: 20170717
  Transmission Date: 20171127
  Serious: Yes (Other)
  Sender: FDA-Public Use
  Company Number: JP-ROCHE-1950908

PATIENT
  Age: 51 Year
  Sex: Female
  Weight: 47 kg

DRUGS (5)
  1. E KEPPRA [Concomitant]
     Active Substance: LEVETIRACETAM
     Dosage: THE FRACTIONATION DOSE FREQUENCY IS UNCERTAIN.
     Route: 048
     Dates: start: 20151210, end: 20160810
  2. XYZAL [Concomitant]
     Active Substance: LEVOCETIRIZINE DIHYDROCHLORIDE
     Dosage: THE FRACTIONATION DOSE FREQUENCY IS UNCERTAIN.
     Route: 048
     Dates: start: 20151210, end: 20160810
  3. AVASTIN [Suspect]
     Active Substance: BEVACIZUMAB
     Indication: MENINGIOMA MALIGNANT
     Dosage: TREATMENT LINE: 1ST LINE
     Route: 041
     Dates: start: 20151210, end: 20160818
  4. TEMODAL [Suspect]
     Active Substance: TEMOZOLOMIDE
     Indication: MENINGIOMA MALIGNANT
     Dosage: .
     Route: 048
     Dates: start: 20151210, end: 20160810
  5. NASEA [Concomitant]
     Active Substance: RAMOSETRON HYDROCHLORIDE
     Dosage: SEVEN DAYS?THE FRACTIONATION DOSE FREQUENCY IS UNCERTAIN.
     Route: 048
     Dates: start: 20151210, end: 20160810

REACTIONS (7)
  - Urinary tract infection [Recovered/Resolved]
  - Off label use [Unknown]
  - Pancytopenia [Not Recovered/Not Resolved]
  - Proteinuria [Recovering/Resolving]
  - Hypertension [Recovered/Resolved]
  - Renal impairment [Not Recovered/Not Resolved]
  - Disuse syndrome [Unknown]

NARRATIVE: CASE EVENT DATE: 20160825
